FAERS Safety Report 17629094 (Version 1)
Quarter: 2020Q2

REPORT INFORMATION
  Report Type: Spontaneous
  Country: US (occurrence: US)
  Receive Date: 20200406
  Receipt Date: 20200406
  Transmission Date: 20200713
  Serious: No
  Sender: FDA-Public Use
  Company Number: US-ALLERGAN-1939302US

PATIENT
  Sex: Female

DRUGS (3)
  1. ASACOL HD [Suspect]
     Active Substance: MESALAMINE
     Indication: COLITIS ULCERATIVE
     Dosage: 1.6 G, BID
     Route: 065
  2. ASACOL HD [Suspect]
     Active Substance: MESALAMINE
     Dosage: UNK
     Route: 065
     Dates: start: 201902, end: 201907
  3. ASACOL HD [Suspect]
     Active Substance: MESALAMINE
     Dosage: 2.4 G, QD
     Route: 065
     Dates: start: 201907

REACTIONS (6)
  - Flatulence [Unknown]
  - Off label use [Unknown]
  - Diarrhoea [Unknown]
  - Abdominal distension [Unknown]
  - Product dose omission [Unknown]
  - Defaecation urgency [Unknown]

NARRATIVE: CASE EVENT DATE: 2019
